FAERS Safety Report 8812517 (Version 7)
Quarter: 2013Q4

REPORT INFORMATION
  Report Type: Spontaneous
  Country: US (occurrence: US)
  Receive Date: 20120927
  Receipt Date: 20131017
  Transmission Date: 20140711
  Serious: Yes (Hospitalization, Other)
  Sender: FDA-Public Use
  Company Number: US-009507513-1201USA00255

PATIENT
  Sex: Female
  Weight: 72.2 kg

DRUGS (5)
  1. FOSAMAX [Suspect]
     Indication: OSTEOPOROSIS
     Dosage: 10 MG, QD
     Route: 048
     Dates: start: 199509, end: 200110
  2. FOSAMAX [Suspect]
     Dosage: 70 MG, QW
     Dates: start: 200110, end: 200803
  3. FOSAMAX [Suspect]
     Dosage: 70 MG, QD
     Route: 048
  4. SYNTHROID [Concomitant]
     Indication: HYPOTHYROIDISM
     Dosage: UNK
     Dates: start: 2004
  5. ALENDRONATE SODIUM [Suspect]
     Indication: OSTEOPOROSIS
     Dosage: 70 MG, QW
     Dates: start: 200803, end: 200901

REACTIONS (33)
  - Open reduction of fracture [Unknown]
  - Spindle cell sarcoma [Unknown]
  - Knee arthroplasty [Unknown]
  - Tachycardia [Unknown]
  - Palpitations [Unknown]
  - Cardiac pacemaker insertion [Unknown]
  - Injury [Unknown]
  - Cardiac pacemaker removal [Unknown]
  - Femur fracture [Unknown]
  - Hypertension [Unknown]
  - Calcium deficiency [Recovered/Resolved]
  - Hypothyroidism [Unknown]
  - Kyphosis [Unknown]
  - Osteoarthritis [Unknown]
  - Night sweats [Unknown]
  - Insomnia [Unknown]
  - Dyspnoea exertional [Unknown]
  - Thirst [Unknown]
  - Diverticulum [Unknown]
  - Spinal osteoarthritis [Unknown]
  - Atrial fibrillation [Unknown]
  - Post procedural haematoma [Unknown]
  - Scoliosis [Not Recovered/Not Resolved]
  - Arthritis [Unknown]
  - Lumbar vertebral fracture [Unknown]
  - Spondylolisthesis [Unknown]
  - Osteopenia [Unknown]
  - Lumbar spinal stenosis [Unknown]
  - Overdose [Unknown]
  - Constipation [Unknown]
  - Dizziness [Unknown]
  - Gastrooesophageal reflux disease [Unknown]
  - Back pain [Unknown]
